FAERS Safety Report 12179898 (Version 5)
Quarter: 2016Q2

REPORT INFORMATION
  Report Type: Spontaneous
  Country: JP (occurrence: JP)
  Receive Date: 20160315
  Receipt Date: 20160502
  Transmission Date: 20160815
  Serious: Yes (Death, Hospitalization, Other)
  Sender: FDA-Public Use
  Company Number: JP-B.I. PHARMACEUTICALS,INC./RIDGEFIELD-2016-BI-15317NB

PATIENT
  Age: 75 Year
  Sex: Female

DRUGS (4)
  1. SULFAMETHOXAZOLE-TRIMETHOPRIM (SMZ) [Suspect]
     Active Substance: SULFAMETHOXAZOLE\TRIMETHOPRIM
     Indication: INFLAMMATION
     Dosage: SULFAMETHOXAZOLE 1600 MG/TRIMETHOPRIM 320 MG, 4 TABLETS PER DAY
     Route: 048
  2. VOGLIBOSE [Suspect]
     Active Substance: VOGLIBOSE
     Indication: PRODUCT USED FOR UNKNOWN INDICATION
     Route: 048
  3. TRAZENTA [Suspect]
     Active Substance: LINAGLIPTIN
     Indication: PRODUCT USED FOR UNKNOWN INDICATION
     Route: 048
     Dates: start: 20130520
  4. GLICLAZIDE [Suspect]
     Active Substance: GLICLAZIDE
     Indication: PRODUCT USED FOR UNKNOWN INDICATION
     Route: 048

REACTIONS (5)
  - Hypoglycaemia [Not Recovered/Not Resolved]
  - Urinary tract infection [Unknown]
  - Drug interaction [Unknown]
  - Hypophagia [Fatal]
  - Infection [Fatal]

NARRATIVE: CASE EVENT DATE: 20150917
